FAERS Safety Report 24618084 (Version 1)
Quarter: 2024Q4

REPORT INFORMATION
  Report Type: Spontaneous
  Country: NL (occurrence: NL)
  Receive Date: 20241114
  Receipt Date: 20241114
  Transmission Date: 20250115
  Serious: Yes (Death)
  Sender: TEVA
  Company Number: None

PATIENT
  Age: 82 Year
  Sex: Female
  Weight: 80 kg

DRUGS (1)
  1. ATORVASTATIN [Suspect]
     Active Substance: ATORVASTATIN
     Indication: Hypercholesterolaemia
     Dosage: 1 TABLET PER DAY
     Route: 048
     Dates: start: 20240507

REACTIONS (1)
  - Pancreatitis acute [Fatal]
